FAERS Safety Report 9423538 (Version 1)
Quarter: 2013Q3

REPORT INFORMATION
  Report Type: Spontaneous
  Country: US (occurrence: US)
  Receive Date: 20130726
  Receipt Date: 20130726
  Transmission Date: 20140515
  Serious: Yes (Other)
  Sender: FDA-Public Use
  Company Number: US-BAXTER-2013BAX021448

PATIENT
  Sex: Female

DRUGS (1)
  1. PENICILLIN G POTASSIUM INJECTION, USP [Suspect]
     Indication: PRODUCT USED FOR UNKNOWN INDICATION
     Route: 042

REACTIONS (2)
  - Coma [Unknown]
  - Drug hypersensitivity [Unknown]
